FAERS Safety Report 8493544-7 (Version None)
Quarter: 2012Q3

REPORT INFORMATION
  Report Type: 
  Country: None (occurrence: None)
  Receive Date: 20120706
  Receipt Date: 20120626
  Transmission Date: 20120928
  Serious: No
  Sender: FDA-Public Use
  Company Number: US-B.I. PHARMACEUTICALS,INC./RIDGEFIELD-2012-BP-14508BP

PATIENT
  Sex: Male

DRUGS (10)
  1. SPIRIVA [Suspect]
     Indication: CHRONIC OBSTRUCTIVE PULMONARY DISEASE
     Dosage: 18 MCG
     Route: 048
     Dates: start: 20110101
  2. SPIRIVA [Suspect]
     Route: 048
     Dates: start: 20110626
  3. PLAVIX [Concomitant]
     Indication: ANTICOAGULANT THERAPY
  4. DIGOXIN [Concomitant]
     Indication: CARDIAC DISORDER
  5. SIMBICORT [Concomitant]
  6. TRICOR [Concomitant]
  7. PRADAXA [Suspect]
     Indication: ANTICOAGULANT THERAPY
  8. PRADAXA [Suspect]
     Indication: ATRIAL FIBRILLATION
     Dosage: 300 MG
     Route: 048
     Dates: start: 20120101
  9. CRESTOR [Concomitant]
  10. SINGULAIR [Concomitant]
     Indication: ASTHMA

REACTIONS (1)
  - INCORRECT ROUTE OF DRUG ADMINISTRATION [None]
